FAERS Safety Report 18977740 (Version 1)
Quarter: 2021Q1

REPORT INFORMATION
  Report Type: Spontaneous
  Country: IT (occurrence: IT)
  Receive Date: 20210306
  Receipt Date: 20210306
  Transmission Date: 20210420
  Serious: Yes (Other)
  Sender: FDA-Public Use
  Company Number: NVSC2021IT041790

PATIENT
  Age: 62 Year
  Sex: Female
  Weight: 99 kg

DRUGS (18)
  1. METHOTREXATE. [Suspect]
     Active Substance: METHOTREXATE
     Indication: BREAST CANCER
     Dosage: 5MG (ON 11/DEC/2019 RECEIVED MOST RECENT DOSE PRIOR TO THE EVENT)
     Route: 048
     Dates: start: 20191030, end: 20191127
  2. DELTACORTENE [Concomitant]
     Active Substance: PREDNISONE
     Indication: PRODUCT USED FOR UNKNOWN INDICATION
     Dosage: UNK ((ONGOING= CHECKED))
     Route: 065
     Dates: start: 20200722
  3. CYCLOPHOSPHAMIDE. [Suspect]
     Active Substance: CYCLOPHOSPHAMIDE
     Indication: BREAST CANCER
     Dosage: 50 MG, 0.5 WEEK (ON 04/DEC/2029, RECEIVED MOST RECENT DOSE PRIOR TO THE EVENT)
     Route: 048
     Dates: start: 20191030, end: 20191127
  4. RAMIPRIL. [Concomitant]
     Active Substance: RAMIPRIL
     Indication: PRODUCT USED FOR UNKNOWN INDICATION
     Dosage: UNK ((ONGOING= CHECKED))
     Route: 065
     Dates: start: 20190909
  5. LUCEN [Concomitant]
     Active Substance: ESOMEPRAZOLE
     Indication: PRODUCT USED FOR UNKNOWN INDICATION
     Dosage: UNK (ONGOING= CHECKED)
     Route: 065
     Dates: start: 20200129
  6. TRASTUZUMAB EMTANSINE [Suspect]
     Active Substance: ADO-TRASTUZUMAB EMTANSINE
     Indication: BREAST CANCER
     Dosage: 75 MG, Q3W (26/SEP/2018 RECEIVED MOST RECENT DOSE PRIOR TO THE EVENT )
     Route: 058
     Dates: start: 20180905, end: 20180905
  7. CAPECITABINE. [Suspect]
     Active Substance: CAPECITABINE
     Indication: BREAST CANCER
     Dosage: 4000 MG,QD
     Route: 048
     Dates: start: 20180521, end: 20180904
  8. VENLAFAXINA [Concomitant]
     Active Substance: VENLAFAXINE HYDROCHLORIDE
     Indication: PRODUCT USED FOR UNKNOWN INDICATION
     Dosage: UNK (ONGOING= CHECKED)
     Route: 065
  9. TRASTUZUMAB. [Suspect]
     Active Substance: TRASTUZUMAB
     Indication: BREAST CANCER
     Dosage: 816 MG, Q3W (ON 27/SEP/2017, RECEIVED MOST RECENT DOSE PRIOR TO THE EVENT.)
     Route: 042
     Dates: start: 20170424, end: 20170424
  10. PERTUZUMAB. [Suspect]
     Active Substance: PERTUZUMAB
     Indication: BREAST CANCER
     Dosage: 840 MG (ON 24/MAY/2017, RECEIVED MOST RECENT DOSE PRIOR TO THE EVENT)
     Route: 042
     Dates: start: 20170424, end: 20170424
  11. DOCETAXEL. [Suspect]
     Active Substance: DOCETAXEL
     Indication: BREAST CANCER
     Dosage: 150 MG, Q3W
     Route: 042
     Dates: start: 20170424, end: 20170816
  12. TRASTUZUMAB EMTANSINE [Suspect]
     Active Substance: ADO-TRASTUZUMAB EMTANSINE
     Dosage: 840 MG, Q3W (ON 09/JUN/2020 RECEIVED MOST RECENT DOSE PRIOR TO THE EVENT )
     Route: 042
     Dates: start: 20190307, end: 20190307
  13. LAPATINIB [Suspect]
     Active Substance: LAPATINIB
     Indication: BREAST CANCER
     Dosage: 1250 MG, QD (ON 02/MAY/2019 RECEIVED MOST RECENT DOSE PRIOR TO THE EVENT.)
     Route: 048
     Dates: start: 20180511, end: 20180904
  14. METOCLOPRAMIDE. [Concomitant]
     Active Substance: METOCLOPRAMIDE
     Indication: PRODUCT USED FOR UNKNOWN INDICATION
     Dosage: UNK (ONGOIN= CHECKED)
     Route: 065
     Dates: start: 20200401
  15. LORATADINA [Concomitant]
     Active Substance: LORATADINE
     Indication: PRODUCT USED FOR UNKNOWN INDICATION
     Dosage: UNK (ONGOING=CHECKED)
     Route: 065
     Dates: start: 20190816
  16. VINORELBINE [Suspect]
     Active Substance: VINORELBINE TARTRATE
     Indication: BREAST CANCER
     Dosage: 50 MG (ON 02/MAY/2019 RECEIVED MOST RECENT DOSE PRIOR TO THE EVENT)
     Route: 042
     Dates: start: 20190307, end: 20190404
  17. EPIRUBICIN [Suspect]
     Active Substance: EPIRUBICIN
     Indication: BREAST CANCER
     Dosage: 130 MG, Q3W
     Route: 042
     Dates: start: 20181128, end: 20190130
  18. CARBOPLATIN. [Suspect]
     Active Substance: CARBOPLATIN
     Indication: BREAST CANCER
     Dosage: 600 MG, Q3W (ON 28/JUL/2020 RECEIVED MOST RECENT DOSE PRIOR TO THE EVENT)
     Route: 042
     Dates: start: 20200422, end: 20200422

REACTIONS (1)
  - Neutropenia [Recovering/Resolving]

NARRATIVE: CASE EVENT DATE: 20201216
